FAERS Safety Report 10572514 (Version 1)
Quarter: 2014Q4

REPORT INFORMATION
  Report Type: Spontaneous
  Country: US (occurrence: US)
  Receive Date: 20141110
  Receipt Date: 20141110
  Transmission Date: 20150529
  Serious: Yes (Hospitalization)
  Sender: FDA-Public Use
  Company Number: US-DRREDDYS-USA/USA/14/0044134

PATIENT
  Age: 30 Year
  Sex: Male

DRUGS (4)
  1. CLINDAMYCIN [Suspect]
     Active Substance: CLINDAMYCIN\CLINDAMYCIN PHOSPHATE
     Indication: JOINT INJURY
     Route: 065
  2. NAPROXEN SODIUM 220 MG [Suspect]
     Active Substance: NAPROXEN SODIUM
     Indication: JOINT INJURY
     Route: 065
  3. TUMS [Suspect]
     Active Substance: CALCIUM CARBONATE
     Indication: GASTROOESOPHAGEAL REFLUX DISEASE
     Route: 065
  4. TUMS [Suspect]
     Active Substance: CALCIUM CARBONATE
     Route: 065

REACTIONS (9)
  - Milk-alkali syndrome [Unknown]
  - Decreased appetite [Unknown]
  - Hypovolaemia [Unknown]
  - Dyspepsia [Unknown]
  - Thirst [Unknown]
  - Constipation [Unknown]
  - Nausea [Unknown]
  - Irritability [Unknown]
  - Vomiting [Unknown]
